FAERS Safety Report 12370804 (Version 1)
Quarter: 2016Q2

REPORT INFORMATION
  Report Type: Spontaneous
  Country: US (occurrence: US)
  Receive Date: 20160516
  Receipt Date: 20160516
  Transmission Date: 20160815
  Serious: No
  Sender: FDA-Public Use
  Company Number: US-009507513-1605USA007096

PATIENT
  Age: 52 Year
  Sex: Male

DRUGS (10)
  1. ZONISAMIDE. [Concomitant]
     Active Substance: ZONISAMIDE
  2. NORVIR [Concomitant]
     Active Substance: RITONAVIR
  3. HYDROCHLOROTHIAZIDE. [Concomitant]
     Active Substance: HYDROCHLOROTHIAZIDE
  4. BELSOMRA [Suspect]
     Active Substance: SUVOREXANT
     Dosage: 1 TABLET DAILY
     Route: 048
     Dates: start: 201509
  5. RISPERIDONE. [Concomitant]
     Active Substance: RISPERIDONE
  6. LAMOTRIGINE. [Concomitant]
     Active Substance: LAMOTRIGINE
  7. PRAZOSIN [Concomitant]
     Active Substance: PRAZOSIN
  8. REYATAZ [Concomitant]
     Active Substance: ATAZANAVIR SULFATE
  9. TRUVADA [Concomitant]
     Active Substance: EMTRICITABINE\TENOFOVIR DISOPROXIL FUMARATE
  10. LEXAPRO [Concomitant]
     Active Substance: ESCITALOPRAM OXALATE

REACTIONS (1)
  - Drug screen positive [Unknown]

NARRATIVE: CASE EVENT DATE: 20160502
